FAERS Safety Report 6643696-6 (Version None)
Quarter: 2010Q1

REPORT INFORMATION
  Report Type: 
  Country: None (occurrence: None)
  Receive Date: 20100322
  Receipt Date: 20100315
  Transmission Date: 20100710
  Serious: Yes (Hospitalization)
  Sender: FDA-Public Use
  Company Number: US-BIOGENIDEC-2009BI040207

PATIENT
  Age: 44 Year
  Sex: Female

DRUGS (1)
  1. TYSABRI [Suspect]
     Indication: MULTIPLE SCLEROSIS
     Route: 042
     Dates: start: 20071113

REACTIONS (7)
  - CHOLELITHIASIS [None]
  - CYSTITIS [None]
  - FALL [None]
  - FATIGUE [None]
  - HYPOTHYROIDISM [None]
  - MULTIPLE SCLEROSIS RELAPSE [None]
  - PATELLA FRACTURE [None]
